FAERS Safety Report 5715404-4 (Version None)
Quarter: 2008Q2

REPORT INFORMATION
  Report Type: 
  Country: None (occurrence: None)
  Receive Date: 20080423
  Receipt Date: 20080414
  Transmission Date: 20081010
  Serious: Yes (Hospitalization)
  Sender: FDA-Public Use
  Company Number: FR-PFIZER INC-2008033349

PATIENT
  Age: 8 Year
  Sex: Male
  Weight: 17 kg

DRUGS (3)
  1. TRIFLUCAN [Suspect]
  2. AMPHOTERICIN B [Suspect]
     Route: 042
  3. ITRACONAZOLE [Suspect]

REACTIONS (2)
  - GROWTH RETARDATION [None]
  - RENAL TUBULAR DISORDER [None]
